FAERS Safety Report 10751640 (Version 1)
Quarter: 2015Q1

REPORT INFORMATION
  Report Type: Spontaneous
  Country: US (occurrence: US)
  Receive Date: 20150130
  Receipt Date: 20150130
  Transmission Date: 20150721
  Serious: Yes (Other)
  Sender: FDA-Public Use
  Company Number: US-PFIZER INC-2015040735

PATIENT
  Age: 69 Year
  Sex: Female
  Weight: 91 kg

DRUGS (7)
  1. GABAPENTIN. [Concomitant]
     Active Substance: GABAPENTIN
     Indication: PAIN IN EXTREMITY
     Dosage: 300 MG, 3X/DAY
  2. SUTENT [Suspect]
     Active Substance: SUNITINIB MALATE
     Indication: ANGIOSARCOMA
     Dosage: 50 MG, 1X/DAY
     Dates: start: 201410, end: 2014
  3. SUTENT [Suspect]
     Active Substance: SUNITINIB MALATE
     Dosage: 25 UNK, UNK
     Dates: end: 2014
  4. COREG [Concomitant]
     Active Substance: CARVEDILOL
     Indication: CARDIAC MURMUR
     Dosage: 3.125 MG, 2X/DAY
  5. VESICARE [Concomitant]
     Active Substance: SOLIFENACIN SUCCINATE
     Indication: HYPERTONIC BLADDER
     Dosage: 10 MG, DAILY
  6. NEXIUM [Concomitant]
     Active Substance: ESOMEPRAZOLE MAGNESIUM
     Indication: GASTROOESOPHAGEAL REFLUX DISEASE
     Dosage: DAILY
  7. MIRAPEX [Concomitant]
     Active Substance: PRAMIPEXOLE DIHYDROCHLORIDE
     Indication: RESTLESS LEGS SYNDROME
     Dosage: .25 MG, DAILY

REACTIONS (5)
  - Cardiac failure congestive [Not Recovered/Not Resolved]
  - Ejection fraction decreased [Recovered/Resolved]
  - Haemoglobin decreased [Unknown]
  - Dyspnoea [Recovered/Resolved]
  - Product use issue [Unknown]

NARRATIVE: CASE EVENT DATE: 2014
